FAERS Safety Report 4264590-4 (Version None)
Quarter: 2004Q1

REPORT INFORMATION
  Report Type: 
  Country: None (occurrence: None)
  Receive Date: 20040106
  Receipt Date: 20030729
  Transmission Date: 20041129
  Serious: Yes (Hospitalization)
  Sender: FDA-Public Use
  Company Number: JP-ROCHE-343516

PATIENT
  Age: 60 Year
  Sex: Female
  Weight: 50.7 kg

DRUGS (4)
  1. PEG-INTERFERON ALFA 2A (RO 25-8310) [Suspect]
     Route: 058
     Dates: start: 20030117, end: 20030723
  2. RIBAVIRIN [Suspect]
     Route: 048
     Dates: start: 20030117, end: 20030728
  3. TRIMEBUTINE MALEATE [Concomitant]
     Dates: start: 20020823
  4. BECLOMETHASONE DIPROPIONATE [Concomitant]
     Dates: start: 20030523

REACTIONS (12)
  - ABDOMINAL ADHESIONS [None]
  - BILE DUCT CANCER [None]
  - BILE DUCT OBSTRUCTION [None]
  - CHOLELITHIASIS [None]
  - DILATATION INTRAHEPATIC DUCT ACQUIRED [None]
  - DUODENAL OBSTRUCTION [None]
  - EROSIVE OESOPHAGITIS [None]
  - GASTROINTESTINAL HAEMORRHAGE [None]
  - HAEMATEMESIS [None]
  - REFLUX OESOPHAGITIS [None]
  - SMALL INTESTINE CARCINOMA [None]
  - VOMITING [None]
